FAERS Safety Report 9937382 (Version 3)
Quarter: 2015Q1

REPORT INFORMATION
  Report Type: Report from Study
  Country: US (occurrence: US)
  Receive Date: 20140303
  Receipt Date: 20150216
  Transmission Date: 20150721
  Serious: Yes (Hospitalization)
  Sender: FDA-Public Use
  Company Number: US-ABBVIE-13P-163-1168124-00

PATIENT
  Age: 30 Year
  Sex: Male
  Weight: 98.52 kg

DRUGS (3)
  1. BUDESONIDE. [Concomitant]
     Active Substance: BUDESONIDE
  2. HUMIRA [Suspect]
     Active Substance: ADALIMUMAB
     Dates: start: 20130920
  3. HUMIRA [Suspect]
     Active Substance: ADALIMUMAB
     Indication: CROHN^S DISEASE
     Dosage: LOADING DOSE
     Dates: start: 20130906, end: 20130906

REACTIONS (4)
  - Abdominal pain [Recovered/Resolved]
  - Abscess intestinal [Unknown]
  - Infection [Recovering/Resolving]
  - Skin fissures [Not Recovered/Not Resolved]

NARRATIVE: CASE EVENT DATE: 2013
